FAERS Safety Report 8603721-X (Version None)
Quarter: 2012Q3

REPORT INFORMATION
  Report Type: 
  Country: None (occurrence: None)
  Receive Date: 20120817
  Receipt Date: 20120808
  Transmission Date: 20120928
  Serious: Yes (Other)
  Sender: FDA-Public Use
  Company Number: US-ASTRAZENECA-2012SE56050

PATIENT
  Age: 55 Year
  Sex: Female
  Weight: 72.6 kg

DRUGS (8)
  1. ONGLYA [Concomitant]
     Indication: BLOOD PRESSURE ABNORMAL
     Route: 048
     Dates: start: 20090101
  2. METFORMIN HYDROCHLORIDE [Concomitant]
     Route: 048
     Dates: start: 20040101
  3. NEXIUM [Suspect]
     Indication: GASTROOESOPHAGEAL REFLUX DISEASE
     Route: 048
     Dates: start: 20080101
  4. METFORMIN HYDROCHLORIDE [Concomitant]
     Indication: DIABETES MELLITUS
     Route: 048
  5. METFORMIN HYDROCHLORIDE [Concomitant]
     Route: 048
  6. GLYBURIDE [Concomitant]
     Indication: DIABETES MELLITUS
     Route: 048
     Dates: start: 20040101
  7. TRAMADOL HCL [Concomitant]
     Indication: PAIN
     Dosage: 50 MG, Q4-6H
     Route: 048
     Dates: start: 20040101
  8. ONGLYA [Concomitant]
     Indication: VARICES OESOPHAGEAL
     Route: 048
     Dates: start: 20090101

REACTIONS (4)
  - OFF LABEL USE [None]
  - HAEMORRHAGE [None]
  - BLOOD PRESSURE ABNORMAL [None]
  - VARICES OESOPHAGEAL [None]
